APPROVED DRUG PRODUCT: CHLORAPREP ONE-STEP SEPP
Active Ingredient: CHLORHEXIDINE GLUCONATE; ISOPROPYL ALCOHOL
Strength: 2%;70% (0.67ML)
Dosage Form/Route: SWAB;TOPICAL
Application: N021555 | Product #001
Applicant: BECTON DICKINSON AND CO
Approved: Oct 7, 2002 | RLD: Yes | RS: Yes | Type: OTC